FAERS Safety Report 5080210-3 (Version None)
Quarter: 2006Q3

REPORT INFORMATION
  Report Type: 
  Country: None (occurrence: None)
  Receive Date: 20060810
  Receipt Date: 20060801
  Transmission Date: 20061208
  Serious: Yes (Hospitalization)
  Sender: FDA-Public Use
  Company Number: 200607IM000415

PATIENT
  Age: 64 Year
  Sex: Male
  Weight: 85.7298 kg

DRUGS (8)
  1. BLINDED THERAPY [Suspect]
     Indication: IDIOPATHIC PULMONARY FIBROSIS
     Dosage: 200 UG, TIW, SUBCUTANEOUS
     Route: 058
     Dates: start: 20060112, end: 20060703
  2. NEXIUM [Concomitant]
  3. ZYRTEC [Concomitant]
  4. FLOMAX [Concomitant]
  5. CELEBREX [Concomitant]
  6. CODEINE [Concomitant]
  7. ASPIRIN [Concomitant]
  8. AVANDARYL [Concomitant]

REACTIONS (7)
  - ANTINEUTROPHIL CYTOPLASMIC ANTIBODY POSITIVE [None]
  - BLOOD CREATININE INCREASED [None]
  - GRANULOMA [None]
  - MUSCULAR WEAKNESS [None]
  - PARAESTHESIA [None]
  - RENAL DISORDER [None]
  - VASCULITIS [None]
